FAERS Safety Report 8170230-4 (Version None)
Quarter: 2012Q1

REPORT INFORMATION
  Report Type: 
  Country: None (occurrence: None)
  Receive Date: 20120228
  Receipt Date: 20120213
  Transmission Date: 20120608
  Serious: Yes (Hospitalization)
  Sender: FDA-Public Use
  Company Number: US-SHIRE-ALL1-2012-00842

PATIENT
  Sex: Male
  Weight: 21.1 kg

DRUGS (9)
  1. CLARITIN                           /00917501/ [Concomitant]
     Indication: PREMEDICATION
     Dosage: 10 MG, UNKNOWN
     Route: 065
  2. TYLENOL (CAPLET) [Concomitant]
     Indication: PREMEDICATION
     Dosage: 240 MG, UNKNOWN
     Route: 065
  3. PREVACID [Concomitant]
     Indication: PRODUCT USED FOR UNKNOWN INDICATION
     Dosage: 15 MG, 1X/DAY:QD
     Route: 065
  4. ALBUTEROL [Concomitant]
     Indication: WHEEZING
     Dosage: 90 ?G, AS REQ'D EVERY 4 HOURS
     Route: 048
  5. IRON [Concomitant]
     Indication: SUPPLEMENTATION THERAPY
     Dosage: UNK, UNKNOWN
     Route: 065
  6. LIDOCAINE [Concomitant]
     Indication: PRODUCT USED FOR UNKNOWN INDICATION
     Dosage: UNK, UNKNOWN
     Route: 061
  7. FLOVENT [Concomitant]
     Indication: PNEUMONIA VIRAL
     Dosage: 110 ?G (2 PUFFS), 2X/DAY:BID
     Route: 048
  8. ELAPRASE [Suspect]
     Indication: MUCOPOLYSACCHARIDOSIS II
     Dosage: 12 MG, 1X/WEEK
     Route: 041
     Dates: start: 20091203
  9. ALBUTEROL [Concomitant]
     Indication: COUGH

REACTIONS (4)
  - PYREXIA [None]
  - DERMATITIS [None]
  - METAPNEUMOVIRUS INFECTION [None]
  - HYPOXIA [None]
